FAERS Safety Report 6189403-5 (Version None)
Quarter: 2009Q2

REPORT INFORMATION
  Report Type: 
  Country: None (occurrence: None)
  Receive Date: 20090512
  Receipt Date: 20090428
  Transmission Date: 20091009
  Serious: Yes (Hospitalization, Other)
  Sender: FDA-Public Use
  Company Number: ADE2009-0599

PATIENT
  Age: 57 Year
  Sex: Male

DRUGS (8)
  1. RISPERIDONE [Suspect]
     Indication: HALLUCINATION
     Dosage: 1MG, DAILY, ORAL
     Route: 048
  2. SIMVASTATIN [Suspect]
     Indication: MYOCARDIAL INFARCTION
     Dosage: 40MG, DAILY,
  3. CYCLOSPORINE [Suspect]
     Indication: GRAFT VERSUS HOST DISEASE
     Dosage: 0.5MG - Q12H - IV
     Route: 042
  4. ACYCLOVIR [Suspect]
     Indication: CONFUSIONAL STATE
  5. VORICONAZOLE [Suspect]
  6. ATENOLOL [Concomitant]
  7. ENALAPRIL MALEATE [Concomitant]
  8. METHOTREXATE [Concomitant]

REACTIONS (3)
  - MOBILITY DECREASED [None]
  - PAIN [None]
  - RHABDOMYOLYSIS [None]
